FAERS Safety Report 8887896 (Version 1)
Quarter: 2012Q4

REPORT INFORMATION
  Report Type: Spontaneous
  Country: US (occurrence: None)
  Receive Date: 20121101
  Receipt Date: 20121101
  Transmission Date: 20130627
  Serious: No
  Sender: FDA-Public Use
  Company Number: None

PATIENT
  Age: 53 Year
  Sex: Male
  Weight: 104.1 kg

DRUGS (2)
  1. ABCIXIMAB [Suspect]
     Indication: CARDIOVASCULAR DISORDER
     Route: 042
     Dates: start: 20120806, end: 20120806
  2. ABCIXIMAB [Suspect]
     Indication: CORONARY STENT PLACEMENT
     Route: 042
     Dates: start: 20120806, end: 20120806

REACTIONS (1)
  - Thrombocytopenia [None]
